FAERS Safety Report 16743002 (Version 3)
Quarter: 2019Q4

REPORT INFORMATION
  Report Type: Report from Study
  Country: None (occurrence: CA)
  Receive Date: 20190827
  Receipt Date: 20191007
  Transmission Date: 20200122
  Serious: Yes (Hospitalization, Other)
  Sender: FDA-Public Use
  Company Number: CA-ABBVIE-19K-028-2901757-00

PATIENT
  Age: 40 Year
  Sex: Female

DRUGS (2)
  1. LUPRON DEPOT [Suspect]
     Active Substance: LEUPROLIDE ACETATE
     Indication: ENDOMETRIOSIS
     Route: 030
     Dates: start: 2019, end: 2019
  2. LUPRON DEPOT [Suspect]
     Active Substance: LEUPROLIDE ACETATE
     Indication: ENDOMETRIOSIS
     Route: 030
     Dates: start: 201806, end: 201812

REACTIONS (4)
  - Uterine leiomyoma [Recovering/Resolving]
  - Adnexa uteri cyst [Recovered/Resolved]
  - Uterine leiomyoma [Recovered/Resolved]
  - Hernia pain [Unknown]

NARRATIVE: CASE EVENT DATE: 201907
